FAERS Safety Report 25299813 (Version 1)
Quarter: 2025Q2

REPORT INFORMATION
  Report Type: Spontaneous
  Country: AU (occurrence: AU)
  Receive Date: 20250512
  Receipt Date: 20250512
  Transmission Date: 20250717
  Serious: Yes (Other)
  Sender: ALKEM
  Company Number: None

PATIENT
  Age: 62 Year
  Sex: Male

DRUGS (2)
  1. OLANZAPINE [Suspect]
     Active Substance: OLANZAPINE
     Indication: Product used for unknown indication
     Route: 065
  2. CLOZARIL [Suspect]
     Active Substance: CLOZAPINE
     Indication: Product used for unknown indication
     Route: 065

REACTIONS (9)
  - Acute myeloid leukaemia [Unknown]
  - Haematological malignancy [Unknown]
  - Thrombocytopenia [Unknown]
  - Neutropenia [Unknown]
  - White blood cell count decreased [Unknown]
  - Anaemia [Unknown]
  - Heart rate decreased [Unknown]
  - Therapy interrupted [Unknown]
  - Headache [Unknown]
